FAERS Safety Report 13068575 (Version 2)
Quarter: 2017Q1

REPORT INFORMATION
  Report Type: Spontaneous
  Country: US (occurrence: US)
  Receive Date: 20161228
  Receipt Date: 20170104
  Transmission Date: 20170428
  Serious: Yes (Life-Threatening, Hospitalization, Other)
  Sender: FDA-Public Use
  Company Number: US-JNJFOC-20161218985

PATIENT
  Age: 81 Year
  Sex: Male
  Weight: 84 kg

DRUGS (6)
  1. ADEMPAS [Suspect]
     Active Substance: RIOCIGUAT
     Indication: PULMONARY HYPERTENSION
     Route: 048
     Dates: start: 20150422
  2. XARELTO [Suspect]
     Active Substance: RIVAROXABAN
     Indication: PRODUCT USED FOR UNKNOWN INDICATION
     Route: 048
  3. AMLODIPINE [Concomitant]
     Active Substance: AMLODIPINE BESYLATE
     Route: 065
  4. ADEMPAS [Suspect]
     Active Substance: RIOCIGUAT
     Indication: PULMONARY HYPERTENSION
     Route: 048
     Dates: start: 20150611
  5. ADEMPAS [Suspect]
     Active Substance: RIOCIGUAT
     Indication: PULMONARY HYPERTENSION
     Route: 048
     Dates: start: 20150423
  6. ADEMPAS [Suspect]
     Active Substance: RIOCIGUAT
     Indication: PULMONARY HYPERTENSION
     Route: 048

REACTIONS (15)
  - Dyspepsia [Not Recovered/Not Resolved]
  - Joint swelling [Unknown]
  - Multiple organ dysfunction syndrome [Unknown]
  - Hypotension [Unknown]
  - Nausea [Unknown]
  - Gastrointestinal disorder [Unknown]
  - Upper gastrointestinal haemorrhage [Unknown]
  - Haemorrhage [Unknown]
  - Pneumonia [Unknown]
  - Pulmonary arterial pressure decreased [Unknown]
  - Blood pressure decreased [Unknown]
  - Fatigue [Unknown]
  - Blood pressure increased [Unknown]
  - Gastrooesophageal reflux disease [Unknown]
  - Vertigo [Unknown]

NARRATIVE: CASE EVENT DATE: 20161001
